FAERS Safety Report 11930662 (Version 1)
Quarter: 2016Q1

REPORT INFORMATION
  Report Type: Spontaneous
  Country: US (occurrence: None)
  Receive Date: 20160119
  Receipt Date: 20160119
  Transmission Date: 20160526
  Serious: No
  Sender: FDA-Public Use
  Company Number: None

PATIENT
  Age: 72 Year
  Sex: Female
  Weight: 104 kg

DRUGS (1)
  1. VENOFER [Suspect]
     Active Substance: IRON SUCROSE
     Indication: IRON DEFICIENCY ANAEMIA
     Route: 042
     Dates: start: 20151218, end: 20151218

REACTIONS (9)
  - Swelling [None]
  - Erythema [None]
  - Chills [None]
  - Ecchymosis [None]
  - Thrombophlebitis superficial [None]
  - Infusion site pain [None]
  - Hypersensitivity [None]
  - Pain in extremity [None]
  - Cellulitis [None]

NARRATIVE: CASE EVENT DATE: 20151218
